FAERS Safety Report 4687451-5 (Version None)
Quarter: 2005Q2

REPORT INFORMATION
  Report Type: 
  Country: None (occurrence: None)
  Receive Date: 20050609
  Receipt Date: 20050609
  Transmission Date: 20051028
  Serious: No
  Sender: FDA-Public Use
  Company Number: None

PATIENT
  Sex: Male
  Weight: 86.1834 kg

DRUGS (1)
  1. BEXTRA [Suspect]
     Dosage: DAILY
     Dates: start: 20030101, end: 20050410

REACTIONS (2)
  - CROHN'S DISEASE [None]
  - RASH [None]
